FAERS Safety Report 8058228-8 (Version None)
Quarter: 2012Q1

REPORT INFORMATION
  Report Type: 
  Country: None (occurrence: None)
  Receive Date: 20120111
  Receipt Date: 20120103
  Transmission Date: 20120608
  Serious: Yes (Other)
  Sender: FDA-Public Use
  Company Number: 2012SP000370

PATIENT
  Sex: Female

DRUGS (1)
  1. NASONEX [Suspect]
     Indication: RHINITIS
     Dosage: 4 DF;BID;NAS
     Route: 045
     Dates: start: 20080101, end: 20110101

REACTIONS (3)
  - HEADACHE [None]
  - EPISTAXIS [None]
  - EAR INFECTION [None]
